FAERS Safety Report 6263638-5 (Version None)
Quarter: 2009Q3

REPORT INFORMATION
  Report Type: 
  Country: None (occurrence: None)
  Receive Date: 20090710
  Receipt Date: 20090629
  Transmission Date: 20100115
  Serious: Yes (Other)
  Sender: FDA-Public Use
  Company Number: IT-ROCHE-640960

PATIENT
  Age: 33 Year
  Sex: Female

DRUGS (5)
  1. MYCOPHENOLATE MOFETIL [Suspect]
     Indication: DERMATOMYOSITIS
     Route: 065
  2. RITUXIMAB [Suspect]
     Indication: DERMATOMYOSITIS
     Route: 042
  3. IMMUNE GLOBULIN INTRAVENOUS (HUMAN) [Suspect]
     Indication: DERMATOMYOSITIS
     Route: 042
  4. PREDNISONE TAB [Concomitant]
  5. METHYLPREDNISOLONE [Concomitant]
     Dosage: DRUG REPORTED AS 6-METHYLPREDNISONE FOR 3 CONSECUTIVE DAYS.
     Route: 042

REACTIONS (5)
  - ARTHRITIS BACTERIAL [None]
  - HYPERSENSITIVITY [None]
  - SKIN INFECTION [None]
  - SKIN LESION [None]
  - VASCULITIS NECROTISING [None]
